FAERS Safety Report 4527867-0 (Version None)
Quarter: 2004Q4

REPORT INFORMATION
  Report Type: 
  Country: None (occurrence: None)
  Receive Date: 20041123
  Receipt Date: 20040122
  Transmission Date: 20050328
  Serious: Yes (Other)
  Sender: FDA-Public Use
  Company Number: HQWYE540823JAN04

PATIENT
  Age: 69 Year
  Sex: Male
  Weight: 72.4 kg

DRUGS (7)
  1. ZOSYN [Suspect]
     Indication: PNEUMONIA
     Dosage: 2.25 G 1X PER 6 HR, INTRAVENOUS; 2.5 G 1X PER 8 HR, INTRAVENOUS
     Route: 042
     Dates: start: 20040109, end: 20040120
  2. ZOSYN [Suspect]
     Indication: PNEUMONIA
     Dosage: 2.25 G 1X PER 6 HR, INTRAVENOUS; 2.5 G 1X PER 8 HR, INTRAVENOUS
     Route: 042
     Dates: start: 20040120
  3. ADVAIR (FLUTICASONE PROPIONATE/SALMETEROL XINAFOATE) [Concomitant]
  4. CARDIZEM CD [Concomitant]
  5. ALLOPURINOL [Concomitant]
  6. SINGULAIR [Concomitant]
  7. PROTONIX [Concomitant]

REACTIONS (1)
  - CONVULSION [None]
